FAERS Safety Report 12218698 (Version 5)
Quarter: 2016Q3

REPORT INFORMATION
  Report Type: Spontaneous
  Country: US (occurrence: US)
  Receive Date: 20160329
  Receipt Date: 20160705
  Transmission Date: 20161109
  Serious: Yes (Hospitalization, Other)
  Sender: FDA-Public Use
  Company Number: US-TORRENT-00001163

PATIENT
  Age: 24 Year
  Sex: Female
  Weight: 108 kg

DRUGS (10)
  1. FLEXERIL [Concomitant]
     Active Substance: CYCLOBENZAPRINE HYDROCHLORIDE
     Dosage: DAILY
  2. KLARON [Concomitant]
     Active Substance: SULFACETAMIDE SODIUM
     Indication: ACNE
     Dosage: KLARON (SULFACETAMIDE) 10% LOTION   WAS APPLIED FOR ACNE AT BEDTIME
  3. VALTREX [Concomitant]
     Active Substance: VALACYCLOVIR HYDROCHLORIDE
     Indication: PRODUCT USED FOR UNKNOWN INDICATION
  4. SEASONALE [Concomitant]
     Active Substance: ETHINYL ESTRADIOL\LEVONORGESTREL
     Indication: CONTRACEPTION
     Dosage: ONCE DAILY
     Dates: start: 2014
  5. CYMBALTA [Concomitant]
     Active Substance: DULOXETINE HYDROCHLORIDE
     Dosage: ONCE DAILY
  6. GABAPENTIN. [Concomitant]
     Active Substance: GABAPENTIN
     Dosage: TWICE DAILY
     Dates: start: 2014
  7. ATENOLOL. [Concomitant]
     Active Substance: ATENOLOL
     Dosage: ONCE DAILY
  8. MINOCYCLINE HYDROCHLORIDE CAPSULE [Suspect]
     Active Substance: MINOCYCLINE HYDROCHLORIDE
     Indication: ACNE
     Dosage: TWICE A DAY
     Route: 048
     Dates: start: 20151111, end: 20160127
  9. PROAIR HFA [Concomitant]
     Active Substance: ALBUTEROL SULFATE
     Indication: DYSPNOEA
  10. ROXICODONE [Concomitant]
     Active Substance: OXYCODONE HYDROCHLORIDE
     Indication: PAIN
     Dosage: 5MG IMMEDIATE RELEASE ONE TABLET ORALLY EVERY FOUR HOURS AS NEEDED FOR PAIN
     Route: 048

REACTIONS (1)
  - Intracranial pressure increased [Not Recovered/Not Resolved]

NARRATIVE: CASE EVENT DATE: 201512
